FAERS Safety Report 9375864 (Version 1)
Quarter: 2013Q2

REPORT INFORMATION
  Report Type: Spontaneous
  Country: CH (occurrence: CH)
  Receive Date: 20130628
  Receipt Date: 20130628
  Transmission Date: 20140414
  Serious: Yes (Other)
  Sender: FDA-Public Use
  Company Number: CH-ALLERGAN-1309470US

PATIENT
  Age: 73 Year
  Sex: Male
  Weight: 60 kg

DRUGS (5)
  1. TROSPIUM CHLORIDE UNK [Suspect]
     Indication: DYSURIA
     Dosage: 2 DF, QD
     Route: 048
     Dates: start: 20130430, end: 20130503
  2. SCOPODERM [Suspect]
     Indication: DROOLING
     Dosage: 1 DF, UNK
     Route: 062
     Dates: start: 20130430
  3. NEXIUM [Concomitant]
     Dosage: UNK
  4. ATORVASTATIN [Concomitant]
  5. CIPROXIN [Concomitant]
     Dosage: UNK
     Dates: start: 20130501

REACTIONS (5)
  - Drug interaction [Unknown]
  - Neurological decompensation [Recovered/Resolved]
  - Delirium [Recovered/Resolved]
  - Dysarthria [Recovered/Resolved]
  - Gait disturbance [Recovered/Resolved]
